FAERS Safety Report 7969128-3 (Version None)
Quarter: 2011Q4

REPORT INFORMATION
  Report Type: 
  Country: None (occurrence: None)
  Receive Date: 20111208
  Receipt Date: 20111128
  Transmission Date: 20120403
  Serious: Yes (Hospitalization)
  Sender: FDA-Public Use
  Company Number: FK201102817

PATIENT
  Sex: Female

DRUGS (3)
  1. METHYLPREDNISOLONE ACETATE [Suspect]
     Indication: ARTHRALGIA
     Dosage: 80 MG, INTRA-ARTICULAR
     Route: 014
     Dates: start: 20111029, end: 20111029
  2. DEXAMETHASONE SODIUM PHOSPHATE [Suspect]
     Indication: ARTHRALGIA
     Dosage: 4 MG, INTRA-ARTICULAR
     Route: 014
     Dates: start: 20111029, end: 20111029
  3. LIDOCAINE [Suspect]
     Indication: ARTHRALGIA
     Dosage: INTRA-ARTICULAR
     Route: 014
     Dates: start: 20111029

REACTIONS (3)
  - ARTHRITIS BACTERIAL [None]
  - SEPSIS [None]
  - INFECTION [None]
